FAERS Safety Report 12894822 (Version 1)
Quarter: 2016Q4

REPORT INFORMATION
  Report Type: Spontaneous
  Country: FR (occurrence: FR)
  Receive Date: 20161028
  Receipt Date: 20161028
  Transmission Date: 20170207
  Serious: Yes (Life-Threatening)
  Sender: FDA-Public Use
  Company Number: FR-009507513-1610FRA014333

PATIENT
  Age: 70 Year
  Sex: Female

DRUGS (23)
  1. TARDYFERON [Suspect]
     Active Substance: FERROUS SULFATE
     Indication: ANAEMIA
     Dosage: 1 DF, BID LONG - TERM TREATMENT
     Route: 048
  2. ZOPHREN (ONDANSETRON HYDROCHLORIDE) [Suspect]
     Active Substance: ONDANSETRON HYDROCHLORIDE
     Indication: VOMITING
     Dosage: 1 DF, BID, LONG-TERM TREATMENT
     Route: 048
  3. ALPRAZOLAM. [Suspect]
     Active Substance: ALPRAZOLAM
     Indication: ANXIETY
     Dosage: 0.5 MG, BID, LONG-TERM TREATMENT
     Route: 048
  4. NATISPRAY [Suspect]
     Active Substance: NITROGLYCERIN
     Indication: ANGINA PECTORIS
     Dosage: PRN, LONG-TERM TREATMENT
     Route: 060
  5. RAMIPRIL. [Suspect]
     Active Substance: RAMIPRIL
     Indication: HYPERTENSION
     Dosage: 5 MG, BID
     Route: 048
     Dates: end: 20151126
  6. ALDACTONE [Suspect]
     Active Substance: SPIRONOLACTONE
     Indication: HYPERTENSION
     Dosage: UNK, LONG-TERM TREATMENT
     Route: 048
     Dates: end: 20151215
  7. DAKLINZA [Suspect]
     Active Substance: DACLATASVIR
     Indication: HEPATITIS C
     Dosage: UNK
     Route: 048
     Dates: start: 20140715, end: 20140715
  8. ILARIS [Suspect]
     Active Substance: CANAKINUMAB
     Indication: GOUT
     Dosage: UNK
     Route: 042
     Dates: start: 201501, end: 201507
  9. LANTUS [Suspect]
     Active Substance: INSULIN GLARGINE
     Indication: TYPE 1 DIABETES MELLITUS
     Dosage: 25 IU, LONG - TERM TREATMENT
     Route: 058
  10. ACTISKENAN [Suspect]
     Active Substance: MORPHINE SULFATE
     Indication: PAIN
     Dosage: 1 DF, BID LONG - TERM TREATMENT
     Route: 048
  11. ADENURIC [Suspect]
     Active Substance: FEBUXOSTAT
     Indication: HYPERURICAEMIA
     Dosage: 2 DF, QD LONG - TERM TREATMENT
     Route: 048
  12. TIORFAN [Suspect]
     Active Substance: RACECADOTRIL
     Indication: DIARRHOEA
     Dosage: 3 DF, BID LONG - TERM TREATMENT
     Route: 048
  13. DUROGESIC [Suspect]
     Active Substance: FENTANYL
     Indication: PAIN
     Dosage: 0.3333 DF (1 DF, 1 IN 72 HOURS), LONG-TERM TREATMENT (STRENGHT REPORTED AS 100 MICROGRAM/HOUR (16.8
     Route: 062
  14. LOPERAMIDE [Suspect]
     Active Substance: LOPERAMIDE
     Indication: DIARRHOEA
     Dosage: 2 DF, TID LONG - TERM TREATMENT
     Route: 048
  15. TEMERIT [Suspect]
     Active Substance: NEBIVOLOL
     Indication: PALPITATIONS
     Dosage: 1 DF, BID, LONG-TERM TREATMENT
     Route: 048
     Dates: end: 20151123
  16. INEGY [Suspect]
     Active Substance: EZETIMIBE\SIMVASTATIN
     Indication: DYSLIPIDAEMIA
     Dosage: 1 DF, LONG - TERM TREATMENT
     Route: 048
  17. KALEORID [Suspect]
     Active Substance: POTASSIUM CHLORIDE
     Indication: HYPOKALAEMIA
     Dosage: 4 DF, QID LONG - TERM TREATMENT
     Route: 048
  18. DOXYCYCLINE. [Suspect]
     Active Substance: DOXYCYCLINE
     Indication: PULMONARY SARCOIDOSIS
     Dosage: 100 MG, BID LONG - TERM TREATMENT
     Route: 048
  19. LASILIX [Suspect]
     Active Substance: FUROSEMIDE
     Indication: HYPERTENSION
     Dosage: 2 DF, BID LONG - TERM TREATMENT
     Route: 048
  20. INEXIUM (ESOMEPRAZOLE MAGNESIUM) [Suspect]
     Active Substance: ESOMEPRAZOLE MAGNESIUM
     Indication: GASTRITIS PROPHYLAXIS
     Dosage: 1 DF, TID LONG - TERM TREATMENT
     Route: 048
  21. GAVISCON (ALUMINUM HYDROXIDE (+) CALCIUM CARBONATE (+) SODIUM ALGINATE [Suspect]
     Active Substance: ALUMINUM HYDROXIDE \CALCIUM CARBONATE\SODIUM ALGINATE\SODIUM BICARBONATE
     Indication: DYSPEPSIA
     Dosage: 1 DF, TID LONG - TERM TREATMENT
     Route: 048
  22. SOVALDI [Suspect]
     Active Substance: SOFOSBUVIR
     Indication: HEPATITIS C
     Dosage: UNK
     Route: 048
     Dates: start: 20140715, end: 20150115
  23. ADALAT [Suspect]
     Active Substance: NIFEDIPINE
     Indication: RAYNAUD^S PHENOMENON
     Dosage: 1 DF, BID, LONG-TERM TREATMENT
     Route: 048
     Dates: start: 20151102, end: 20151123

REACTIONS (3)
  - Troponin increased [Recovered/Resolved]
  - Angina unstable [Recovered/Resolved]
  - Acute coronary syndrome [Recovered/Resolved]

NARRATIVE: CASE EVENT DATE: 20160822
